FAERS Safety Report 14783417 (Version 1)
Quarter: 2018Q2

REPORT INFORMATION
  Report Type: Spontaneous
  Country: AU (occurrence: AU)
  Receive Date: 20180420
  Receipt Date: 20180420
  Transmission Date: 20180711
  Serious: Yes (Hospitalization)
  Sender: FDA-Public Use
  Company Number: AU-NAPPMUNDI-GBR-2018-0055059

PATIENT
  Age: 88 Year
  Sex: Female

DRUGS (10)
  1. TARGIN [Suspect]
     Active Substance: NALOXONE HYDROCHLORIDE\OXYCODONE HYDROCHLORIDE
     Indication: PAIN
     Dosage: 2.5/1.25 MG IN THE MORNING
     Route: 048
     Dates: start: 20180101, end: 20180404
  2. LOSEC [Concomitant]
     Active Substance: OMEPRAZOLE
  3. PANADOL [Concomitant]
     Active Substance: ACETAMINOPHEN
  4. STEMETIL                           /00013301/ [Concomitant]
     Active Substance: PROCHLORPERAZINE
  5. LEVOTHYROXINE. [Concomitant]
     Active Substance: LEVOTHYROXINE
  6. TARGIN [Suspect]
     Active Substance: NALOXONE HYDROCHLORIDE\OXYCODONE HYDROCHLORIDE
     Dosage: 5/2.5 MG AT NIGHT
     Route: 048
     Dates: start: 20180101, end: 20180404
  7. DBL ASPIRIN [Concomitant]
  8. CRESTOR [Concomitant]
     Active Substance: ROSUVASTATIN CALCIUM
  9. TEMAZE [Concomitant]
     Active Substance: TEMAZEPAM
  10. ATENOLOL. [Concomitant]
     Active Substance: ATENOLOL

REACTIONS (1)
  - Impaired gastric emptying [Recovered/Resolved]

NARRATIVE: CASE EVENT DATE: 20180404
